FAERS Safety Report 23512812 (Version 1)
Quarter: 2024Q1

REPORT INFORMATION
  Report Type: Spontaneous
  Country: US (occurrence: None)
  Receive Date: 20240209
  Receipt Date: 20240209
  Transmission Date: 20240410
  Serious: No
  Sender: FDA-Public Use
  Company Number: None

PATIENT
  Age: 72 Year
  Sex: Female
  Weight: 171 kg

DRUGS (15)
  1. MOUNJARO [Suspect]
     Active Substance: TIRZEPATIDE
     Indication: Diabetes mellitus
     Dosage: FREQUENCY : WEEKLY;?
     Route: 058
     Dates: start: 20230801
  2. MOUNJARO [Suspect]
     Active Substance: TIRZEPATIDE
     Indication: Weight decreased
  3. CONTINUOUS GLUCOSE MONITOR [Concomitant]
  4. HYDROCODONE [Concomitant]
     Active Substance: HYDROCODONE
  5. PREGABALIN [Concomitant]
     Active Substance: PREGABALIN
  6. METOPROLOL SUCCINATE [Concomitant]
     Active Substance: METOPROLOL SUCCINATE
  7. LOSARTAN [Concomitant]
     Active Substance: LOSARTAN
  8. DIGOXIN [Concomitant]
     Active Substance: DIGOXIN
  9. BUMEX [Concomitant]
     Active Substance: BUMETANIDE
  10. ELIQUIS [Concomitant]
     Active Substance: APIXABAN
  11. ALLOPURINOL [Concomitant]
     Active Substance: ALLOPURINOL
  12. STATIN RU-500 [Concomitant]
  13. VITAMIN D3 [Concomitant]
     Active Substance: CHOLECALCIFEROL
  14. VITAMINS [Concomitant]
     Active Substance: VITAMINS
  15. MAGNESIUM [Concomitant]
     Active Substance: MAGNESIUM

REACTIONS (6)
  - Constipation [None]
  - Nausea [None]
  - Abdominal distension [None]
  - Depression [None]
  - Suicidal behaviour [None]
  - Migraine [None]

NARRATIVE: CASE EVENT DATE: 20231125
